FAERS Safety Report 4337163-2 (Version None)
Quarter: 2004Q2

REPORT INFORMATION
  Report Type: 
  Country: None (occurrence: None)
  Receive Date: 20040408
  Receipt Date: 20040330
  Transmission Date: 20050107
  Serious: Yes (Hospitalization, Other)
  Sender: FDA-Public Use
  Company Number: HQWYE291031MAR04

PATIENT
  Age: 39 Year
  Sex: Male

DRUGS (5)
  1. EFFEXOR XR [Suspect]
     Indication: DEPRESSION
     Dosage: 75 MG 1X PER 1 DAY ORAL
     Route: 048
     Dates: start: 20031007, end: 20031125
  2. EFFEXOR XR [Suspect]
     Indication: SCHIZOPHRENIA
     Dosage: 10 MG 1X PER 1 DAY ORAL
     Route: 048
     Dates: start: 20021022, end: 20031125
  3. LOVAN (FLUOXETINE HYDROCHLORIDE) [Concomitant]
  4. ALPRAZOLAM [Concomitant]
  5. VALIUM [Concomitant]

REACTIONS (6)
  - AGITATION [None]
  - ANXIETY [None]
  - HYPERVENTILATION [None]
  - PALLOR [None]
  - RESTLESSNESS [None]
  - TREMOR [None]
